FAERS Safety Report 8037396-8 (Version None)
Quarter: 2012Q1

REPORT INFORMATION
  Report Type: 
  Country: None (occurrence: None)
  Receive Date: 20120111
  Receipt Date: 20120102
  Transmission Date: 20120608
  Serious: Yes (Death)
  Sender: FDA-Public Use
  Company Number: US-BAYER-2012-000653

PATIENT
  Age: 19 Year
  Sex: Female

DRUGS (8)
  1. SALICYLATES [Suspect]
  2. HYDROXYZINE [Suspect]
  3. DIAZEPAM [Suspect]
  4. AMLODIPINE [Suspect]
  5. ACETAMINOPHEN AND HYDROCODONE BITARTRATE [Suspect]
  6. ATENOLOL [Suspect]
  7. DIPHENHYDRAMINE HCL [Suspect]
  8. TRIAMTERENE AND HYDROCHLOROTHIAZIDE [Suspect]

REACTIONS (4)
  - TOXICITY TO VARIOUS AGENTS [None]
  - COMPLETED SUICIDE [None]
  - RESPIRATORY ARREST [None]
  - CARDIAC ARREST [None]
